FAERS Safety Report 24012991 (Version 6)
Quarter: 2025Q1

REPORT INFORMATION
  Report Type: Spontaneous
  Country: CZ (occurrence: CZ)
  Receive Date: 20240626
  Receipt Date: 20250213
  Transmission Date: 20250409
  Serious: Yes (Life-Threatening, Hospitalization, Other)
  Sender: AUROBINDO
  Company Number: CZ-LESVI-2024003315

PATIENT
  Age: 46 Year
  Sex: Male

DRUGS (15)
  1. OLANZAPINE [Suspect]
     Active Substance: OLANZAPINE
     Indication: Schizophrenia
     Dosage: 30 MILLIGRAM, ONCE A DAY (ON THE 3RD DAY SWITCHED TO 30 MG PER DAY ORALLY)
     Route: 048
  2. OLANZAPINE [Suspect]
     Active Substance: OLANZAPINE
     Dosage: 20 MILLIGRAM, ONCE A DAY
     Route: 065
  3. OLANZAPINE [Suspect]
     Active Substance: OLANZAPINE
     Dosage: 20 MILLIGRAM, ONCE A DAY
     Route: 065
  4. SERTRALINE [Suspect]
     Active Substance: SERTRALINE HYDROCHLORIDE
     Indication: Schizophrenia
     Dosage: 100 MILLIGRAM, ONCE A DAY
     Route: 065
  5. ARIPIPRAZOLE [Suspect]
     Active Substance: ARIPIPRAZOLE
     Indication: Schizophrenia
     Dosage: 15 MILLIGRAM, ONCE A DAY
     Route: 065
  6. CLONAZEPAM [Suspect]
     Active Substance: CLONAZEPAM
     Indication: Catatonia
     Dosage: 4 MILLIGRAM, ONCE A DAY (4 MG PER DAY WAS ADJUVANTLY PRESCRIBED)
     Route: 065
  7. CLONAZEPAM [Suspect]
     Active Substance: CLONAZEPAM
     Indication: Schizophrenia
     Dosage: 8 MILLIGRAM, ONCE A DAY (TEMPORARILY INCREASED TO 8 MG PER DAY)
     Route: 048
  8. MIDAZOLAM [Suspect]
     Active Substance: MIDAZOLAM
     Indication: Catatonia
     Dosage: 5 MILLIGRAM, ONCE A DAY
     Route: 065
  9. MIDAZOLAM [Suspect]
     Active Substance: MIDAZOLAM
     Indication: Schizophrenia
  10. OLANZAPINE [Suspect]
     Active Substance: OLANZAPINE
     Indication: Schizophrenia
     Dosage: 20 MILLIGRAM, ONCE A DAY
     Route: 065
  11. OLANZAPINE [Suspect]
     Active Substance: OLANZAPINE
     Route: 048
  12. CEFUROXIME [Concomitant]
     Active Substance: CEFUROXIME
     Indication: Pyrexia
     Route: 065
  13. BROMOCRIPTINE [Concomitant]
     Active Substance: BROMOCRIPTINE
     Indication: Catatonia
     Dosage: 7.5 MILLIGRAM, ONCE A DAY
     Route: 065
  14. SULFAMETHOXAZOLE [Concomitant]
     Active Substance: SULFAMETHOXAZOLE
     Indication: C-reactive protein increased
     Route: 065
  15. SULFAMETHOXAZOLE [Concomitant]
     Active Substance: SULFAMETHOXAZOLE
     Indication: Pyrexia

REACTIONS (17)
  - Catatonia [Recovered/Resolved]
  - Schizophrenia [Unknown]
  - Malignant catatonia [Recovered/Resolved]
  - Hyperglycaemia [Unknown]
  - Condition aggravated [Unknown]
  - Intentional product use issue [Unknown]
  - Treatment noncompliance [Unknown]
  - Disease progression [Unknown]
  - Hospitalisation [Unknown]
  - Hypertension [Unknown]
  - Staphylococcal infection [Unknown]
  - Pyrexia [Unknown]
  - Amnesia [Unknown]
  - Drug ineffective [Unknown]
  - Off label use [Unknown]
  - Therapy cessation [Unknown]
  - Product administration error [Unknown]
